FAERS Safety Report 20246821 (Version 6)
Quarter: 2022Q1

REPORT INFORMATION
  Report Type: Spontaneous
  Country: DE (occurrence: DE)
  Receive Date: 20211229
  Receipt Date: 20220329
  Transmission Date: 20220423
  Serious: Yes (Hospitalization)
  Sender: FDA-Public Use
  Company Number: DE-GLAXOSMITHKLINE-DECH2021GSK091686

PATIENT
  Age: 41 Year
  Sex: Female
  Weight: 71.6 kg

DRUGS (1)
  1. NICOTINE [Suspect]
     Active Substance: NICOTINE
     Indication: Product used for unknown indication
     Dosage: UNK

REACTIONS (2)
  - Vocal cord cyst [Recovered/Resolved]
  - Tobacco abuse [Unknown]

NARRATIVE: CASE EVENT DATE: 20211117
